FAERS Safety Report 6567821-0 (Version None)
Quarter: 2010Q1

REPORT INFORMATION
  Report Type: 
  Country: None (occurrence: None)
  Receive Date: 20100203
  Receipt Date: 20100125
  Transmission Date: 20100710
  Serious: Yes (Other)
  Sender: FDA-Public Use
  Company Number: US-JNJFOC-20090904253

PATIENT
  Sex: Female
  Weight: 71.67 kg

DRUGS (12)
  1. REMICADE [Suspect]
     Indication: RHEUMATOID ARTHRITIS
     Route: 042
     Dates: start: 20090113, end: 20090801
  2. REMICADE [Suspect]
     Route: 042
     Dates: start: 20090113, end: 20090801
  3. REMICADE [Suspect]
     Route: 042
     Dates: start: 20090113, end: 20090801
  4. REMICADE [Suspect]
     Dosage: 4TH INFUSION
     Route: 042
     Dates: start: 20090113, end: 20090801
  5. REMICADE [Suspect]
     Route: 042
     Dates: start: 20090113, end: 20090801
  6. REMICADE [Suspect]
     Route: 042
     Dates: start: 20090113, end: 20090801
  7. REMICADE [Suspect]
     Route: 042
     Dates: start: 20090113, end: 20090801
  8. LEFLUNOMIDE [Suspect]
     Indication: RHEUMATOID ARTHRITIS
     Route: 048
  9. NAPROXEN [Concomitant]
     Indication: RHEUMATOID ARTHRITIS
     Route: 048
  10. FOLIC ACID [Concomitant]
     Indication: RHEUMATOID ARTHRITIS
     Route: 048
  11. PRILOSEC [Concomitant]
     Indication: RHEUMATOID ARTHRITIS
     Route: 048
  12. ZOLOFT [Concomitant]
     Indication: ANXIETY
     Dosage: 0.5 -1 TABLET DAILY
     Route: 048

REACTIONS (7)
  - DERMATITIS [None]
  - DIARRHOEA [None]
  - NAIL DISORDER [None]
  - PHARYNGITIS STREPTOCOCCAL [None]
  - PSORIASIS [None]
  - RASH [None]
  - SKIN TIGHTNESS [None]
